FAERS Safety Report 7639791-5 (Version None)
Quarter: 2011Q3

REPORT INFORMATION
  Report Type: 
  Country: None (occurrence: None)
  Receive Date: 20110727
  Receipt Date: 20110718
  Transmission Date: 20111222
  Serious: Yes (Other)
  Sender: FDA-Public Use
  Company Number: PHHY2011CA55631

PATIENT
  Sex: Female

DRUGS (2)
  1. MICARDIS [Concomitant]
     Dosage: 40 MG, UNK
  2. ZOLEDRONOC ACID [Suspect]
     Indication: OSTEOPOROSIS
     Dosage: 5 MG, UNK
     Route: 042
     Dates: start: 20110622, end: 20110622

REACTIONS (4)
  - CHEST DISCOMFORT [None]
  - HYPOAESTHESIA [None]
  - PAIN [None]
  - BLOOD PRESSURE INCREASED [None]
